FAERS Safety Report 5372386-5 (Version None)
Quarter: 2007Q2

REPORT INFORMATION
  Report Type: 
  Country: None (occurrence: None)
  Receive Date: 20070627
  Receipt Date: 20070326
  Transmission Date: 20071010
  Serious: No
  Sender: FDA-Public Use
  Company Number: US-BRISTOL-MYERS SQUIBB COMPANY-13727136

PATIENT
  Age: 64 Year
  Sex: Female

DRUGS (8)
  1. SPRYCEL [Suspect]
     Indication: CHRONIC LYMPHOCYTIC LEUKAEMIA
     Route: 048
     Dates: start: 20070324, end: 20070326
  2. GLEEVEC [Concomitant]
  3. VITAMIN A [Concomitant]
  4. ASCORBIC ACID [Concomitant]
  5. VITAMIN E [Concomitant]
  6. BREWERS YEAST [Concomitant]
  7. SODIUM CHLORIDE 0.9% [Concomitant]
     Route: 031
  8. CO-Q-10 [Concomitant]

REACTIONS (1)
  - RASH GENERALISED [None]
